FAERS Safety Report 25071506 (Version 1)
Quarter: 2025Q1

REPORT INFORMATION
  Report Type: Spontaneous
  Country: TH (occurrence: TH)
  Receive Date: 20250312
  Receipt Date: 20250312
  Transmission Date: 20250409
  Serious: Yes (Other)
  Sender: ORGANON
  Company Number: TH-ORGANON-O2503THA001086

PATIENT
  Age: 25 Year
  Sex: Female

DRUGS (6)
  1. ETONOGESTREL [Suspect]
     Active Substance: ETONOGESTREL
     Route: 059
  2. OMEPRAZOLE [Suspect]
     Active Substance: OMEPRAZOLE
  3. BUTYLSCOPOLAMINE BROMIDE [Suspect]
     Active Substance: BUTYLSCOPOLAMINE BROMIDE
  4. NORTRIPTYLINE [Suspect]
     Active Substance: NORTRIPTYLINE
  5. ALBENDAZOLE [Suspect]
     Active Substance: ALBENDAZOLE
  6. MILK OF MAGNESIA [Suspect]
     Active Substance: MAGNESIUM HYDROXIDE

REACTIONS (2)
  - Pregnancy with implant contraceptive [Not Recovered/Not Resolved]
  - Unintended pregnancy [Not Recovered/Not Resolved]

NARRATIVE: CASE EVENT DATE: 20250101
